FAERS Safety Report 24732082 (Version 2)
Quarter: 2025Q1

REPORT INFORMATION
  Report Type: Spontaneous
  Country: US (occurrence: US)
  Receive Date: 20241213
  Receipt Date: 20250110
  Transmission Date: 20250408
  Serious: Yes (Other)
  Sender: UCB
  Company Number: US-UCBSA-2024064252

PATIENT
  Sex: Female
  Weight: 70.113 kg

DRUGS (1)
  1. CIMZIA [Suspect]
     Active Substance: CERTOLIZUMAB PEGOL
     Indication: Rheumatoid arthritis
     Dosage: 400 MILLILITER, EV 2 WEEKS(QOW)
     Route: 058
     Dates: start: 20241129

REACTIONS (3)
  - Rheumatoid arthritis [Unknown]
  - Immunodeficiency [Unknown]
  - Musculoskeletal chest pain [Unknown]

NARRATIVE: CASE EVENT DATE: 20240101
